FAERS Safety Report 18513610 (Version 1)
Quarter: 2020Q4

REPORT INFORMATION
  Report Type: Spontaneous
  Country: US (occurrence: US)
  Receive Date: 20201118
  Receipt Date: 20201118
  Transmission Date: 20210114
  Serious: No
  Sender: FDA-Public Use
  Company Number: US-NALPROPION PHARMACEUTICALS INC.-2020-010148

PATIENT
  Age: 58 Year
  Sex: Female
  Weight: 92.97 kg

DRUGS (1)
  1. CONTRAVE [Suspect]
     Active Substance: BUPROPION HYDROCHLORIDE\NALTREXONE HYDROCHLORIDE
     Indication: WEIGHT CONTROL
     Dosage: 1 PILL A DAY (STARTED TWO YEARS AGO WITHIN THE WEEK OF APRIL 24TH)
     Route: 048
     Dates: start: 201804, end: 2018

REACTIONS (5)
  - Skin discolouration [Unknown]
  - Exfoliative rash [Unknown]
  - Rash pruritic [Unknown]
  - Alopecia [Recovered/Resolved]
  - Rash erythematous [Unknown]

NARRATIVE: CASE EVENT DATE: 201804
